FAERS Safety Report 10425404 (Version 1)
Quarter: 2014Q3

REPORT INFORMATION
  Report Type: Report from Study
  Country: BR (occurrence: BR)
  Receive Date: 20140902
  Receipt Date: 20140902
  Transmission Date: 20150326
  Serious: Yes (Death, Hospitalization)
  Sender: FDA-Public Use
  Company Number: BR-ABBVIE-14K-020-1278043-00

PATIENT
  Age: 23 Year
  Sex: Male

DRUGS (3)
  1. HUMIRA [Suspect]
     Active Substance: ADALIMUMAB
     Indication: PSORIATIC ARTHROPATHY
     Dates: start: 20130201, end: 20131030
  2. CHEMOTHERAPY [Concomitant]
     Active Substance: UNSPECIFIED INGREDIENT
     Indication: LEUKAEMIA RECURRENT
     Dates: start: 20131205, end: 20131207
  3. SELOZOK [Suspect]
     Active Substance: METOPROLOL SUCCINATE
     Indication: PRODUCT USED FOR UNKNOWN INDICATION
     Dates: start: 20131107

REACTIONS (8)
  - Gingival bleeding [Fatal]
  - Immunodeficiency [Fatal]
  - Cough [Fatal]
  - Hyperthyroidism [Fatal]
  - Leukaemia recurrent [Fatal]
  - Asthenia [Fatal]
  - Platelet count decreased [Fatal]
  - Adverse event [Fatal]

NARRATIVE: CASE EVENT DATE: 20131110
